FAERS Safety Report 12856377 (Version 1)
Quarter: 2016Q4

REPORT INFORMATION
  Report Type: Spontaneous
  Country: US (occurrence: US)
  Receive Date: 20161018
  Receipt Date: 20161018
  Transmission Date: 20170207
  Serious: No
  Sender: FDA-Public Use
  Company Number: US-BAYER-2016-200355

PATIENT
  Sex: Female
  Weight: 56.24 kg

DRUGS (2)
  1. ZEGERID OTC [Suspect]
     Active Substance: OMEPRAZOLE\SODIUM BICARBONATE
     Indication: DYSPEPSIA
     Dosage: 1 DF, ONCE
     Route: 048
     Dates: start: 20161015, end: 20161015
  2. ZEGERID OTC [Suspect]
     Active Substance: OMEPRAZOLE\SODIUM BICARBONATE
     Indication: DYSPEPSIA
     Dosage: UNK UNK, PRN
     Route: 048
     Dates: end: 20161015

REACTIONS (2)
  - Product use issue [None]
  - Inappropriate schedule of drug administration [None]
